FAERS Safety Report 7950500-2 (Version None)
Quarter: 2011Q4

REPORT INFORMATION
  Report Type: 
  Country: None (occurrence: None)
  Receive Date: 20111130
  Receipt Date: 20111121
  Transmission Date: 20120403
  Serious: Yes (Disabling, Other)
  Sender: FDA-Public Use
  Company Number: US-ASTRAZENECA-2011SE21709

PATIENT
  Age: 87 Year
  Sex: Female

DRUGS (2)
  1. NEXIUM [Suspect]
     Route: 048
  2. ATACAND [Suspect]
     Route: 048

REACTIONS (4)
  - MALAISE [None]
  - VIRAL INFECTION [None]
  - VOCAL CORD PARALYSIS [None]
  - THROAT CANCER [None]
